FAERS Safety Report 10409835 (Version 1)
Quarter: 2014Q3

REPORT INFORMATION
  Report Type: Spontaneous
  Country: US (occurrence: None)
  Receive Date: 20140825
  Receipt Date: 20140825
  Transmission Date: 20150326
  Serious: Yes (Disabling)
  Sender: FDA-Public Use
  Company Number: None

PATIENT
  Age: 30 Year
  Sex: Male
  Weight: 99.79 kg

DRUGS (1)
  1. PROPECIA [Suspect]
     Active Substance: FINASTERIDE
     Indication: ANDROGENETIC ALOPECIA
     Dosage: 1 PILL ONCE DAILY TAKEN BY MOUTH
     Route: 048
     Dates: start: 2001, end: 2012

REACTIONS (12)
  - Penile size reduced [None]
  - Loss of libido [None]
  - Anxiety [None]
  - Fatigue [None]
  - Muscular weakness [None]
  - Fat tissue increased [None]
  - Obesity [None]
  - Body mass index increased [None]
  - Erectile dysfunction [None]
  - Anorgasmia [None]
  - Depression [None]
  - Semen volume decreased [None]

NARRATIVE: CASE EVENT DATE: 20140822
